FAERS Safety Report 6268573-4 (Version None)
Quarter: 2009Q3

REPORT INFORMATION
  Report Type: 
  Country: None (occurrence: None)
  Receive Date: 20090713
  Receipt Date: 20090713
  Transmission Date: 20100115
  Serious: No
  Sender: FDA-Public Use
  Company Number: None

PATIENT
  Age: 49 Year
  Sex: Female
  Weight: 68.9467 kg

DRUGS (1)
  1. IMITREX [Suspect]
     Indication: MIGRAINE
     Dosage: 1 PILL 1 DOSE PO
     Route: 048
     Dates: start: 20090709, end: 20090709

REACTIONS (8)
  - ASTHENIA [None]
  - DYSARTHRIA [None]
  - HEART RATE INCREASED [None]
  - MENOPAUSAL DISORDER [None]
  - RESPIRATORY RATE INCREASED [None]
  - SENSATION OF HEAVINESS [None]
  - THROAT TIGHTNESS [None]
  - VISION BLURRED [None]
